FAERS Safety Report 12189711 (Version 1)
Quarter: 2016Q1

REPORT INFORMATION
  Report Type: Report from Study
  Country: US (occurrence: US)
  Receive Date: 20160318
  Receipt Date: 20160318
  Transmission Date: 20160526
  Serious: Yes (Other)
  Sender: FDA-Public Use
  Company Number: US-AMGEN-USASL2016033068

PATIENT
  Age: 24 Year
  Sex: Female

DRUGS (1)
  1. ENBREL [Suspect]
     Active Substance: ETANERCEPT
     Indication: ANKYLOSING SPONDYLITIS
     Dosage: 50 MG, QWK
     Route: 065
     Dates: start: 201512

REACTIONS (10)
  - Influenza [Unknown]
  - Enuresis [Unknown]
  - Abdominal pain [Unknown]
  - Seizure [Unknown]
  - Postictal state [Unknown]
  - Bruxism [Unknown]
  - Pharyngitis streptococcal [Unknown]
  - Screaming [Unknown]
  - Somnolence [Unknown]
  - Drooling [Unknown]
